FAERS Safety Report 5965649-3 (Version None)
Quarter: 2008Q4

REPORT INFORMATION
  Report Type: 
  Country: None (occurrence: None)
  Receive Date: 20081119
  Receipt Date: 20080414
  Transmission Date: 20090506
  Serious: Yes (Death, Other)
  Sender: FDA-Public Use
  Company Number: 2008S1006090

PATIENT
  Age: 54 Year
  Sex: Male

DRUGS (2)
  1. CISPLATIN [Suspect]
     Indication: LUNG NEOPLASM MALIGNANT
     Dosage: 156.6 MG, DAILY; INTRAVENOUS
     Route: 042
     Dates: start: 20080304, end: 20080325
  2. ETOPOPHOS PRESERVATIVE FREE [Suspect]
     Indication: LUNG NEOPLASM MALIGNANT
     Dosage: 174 MG DAILY;
     Dates: start: 20080304, end: 20080325

REACTIONS (4)
  - ANAPHYLACTIC SHOCK [None]
  - CARDIO-RESPIRATORY ARREST [None]
  - DERMATITIS ALLERGIC [None]
  - TYPE I HYPERSENSITIVITY [None]
